FAERS Safety Report 6497363-2 (Version None)
Quarter: 2009Q4

REPORT INFORMATION
  Report Type: 
  Country: None (occurrence: None)
  Receive Date: 20091215
  Receipt Date: 20091015
  Transmission Date: 20100525
  Serious: No
  Sender: FDA-Public Use
  Company Number: A0811979A

PATIENT

DRUGS (1)
  1. AVODART [Suspect]
     Route: 048

REACTIONS (2)
  - DRUG ADMINISTRATION ERROR [None]
  - DYSPHAGIA [None]
